FAERS Safety Report 8964903 (Version 1)
Quarter: 2012Q4

REPORT INFORMATION
  Report Type: 
  Country: DK (occurrence: DK)
  Receive Date: 20121213
  Receipt Date: 20121213
  Transmission Date: 20130627
  Serious: Yes (Other)
  Sender: FDA-Public Use
  Company Number: PHHY2011DK63736

PATIENT
  Age: 33 Year
  Sex: Male

DRUGS (1)
  1. DICLON [Suspect]
     Indication: PAIN
     Dosage: UNK
     Route: 048
     Dates: start: 20071016

REACTIONS (4)
  - Disturbance in attention [Unknown]
  - Pain in extremity [Recovered/Resolved]
  - Tinnitus [Unknown]
  - Sleep disorder [Unknown]
